FAERS Safety Report 10173175 (Version 1)
Quarter: 2014Q2

REPORT INFORMATION
  Report Type: Spontaneous
  Country: US (occurrence: US)
  Receive Date: 20140515
  Receipt Date: 20140515
  Transmission Date: 20141212
  Serious: No
  Sender: FDA-Public Use
  Company Number: US-009507513-1405USA005333

PATIENT
  Age: 60 Year
  Sex: Female

DRUGS (3)
  1. JANUMET [Suspect]
     Indication: DIABETES MELLITUS
     Dosage: DOSE/FREQUENCY:50/1000/BID
     Route: 048
  2. JANUMET [Suspect]
     Dosage: LOWERED THE DOSE TO 50/500
     Route: 048
  3. JANUVIA [Suspect]
     Dosage: 100 MG,ONCE DAILY
     Route: 048

REACTIONS (1)
  - Diarrhoea [Recovering/Resolving]
